FAERS Safety Report 6037944-3 (Version None)
Quarter: 2009Q1

REPORT INFORMATION
  Report Type: 
  Country: None (occurrence: None)
  Receive Date: 20090115
  Receipt Date: 20090105
  Transmission Date: 20090719
  Serious: Yes (Death)
  Sender: FDA-Public Use
  Company Number: US-WYE-H07563109

PATIENT
  Age: 36 Year
  Sex: Female

DRUGS (2)
  1. PHENERGAN HCL [Suspect]
     Indication: NAUSEA
     Dosage: UNKNOWN
     Route: 048
     Dates: end: 20070101
  2. PHENERGAN HCL [Suspect]
     Dosage: 25 MG EVERY 1 TOT
     Route: 042
     Dates: start: 20070101, end: 20070101

REACTIONS (4)
  - DRUG INEFFECTIVE [None]
  - DYSPNOEA [None]
  - INTENTIONAL DRUG MISUSE [None]
  - RESPIRATORY ARREST [None]
